FAERS Safety Report 24738746 (Version 1)
Quarter: 2024Q4

REPORT INFORMATION
  Report Type: Spontaneous
  Country: US (occurrence: US)
  Receive Date: 20241216
  Receipt Date: 20241216
  Transmission Date: 20250115
  Serious: No
  Sender: CSL BEHRING
  Company Number: US-BEH-2024187215

PATIENT
  Sex: Female

DRUGS (21)
  1. HIZENTRA [Suspect]
     Active Substance: HUMAN IMMUNOGLOBULIN G
     Indication: Product used for unknown indication
     Dosage: 4 G
     Route: 058
  2. HIZENTRA [Suspect]
     Active Substance: HUMAN IMMUNOGLOBULIN G
     Dosage: 10 G
     Route: 058
  3. ATORVASTATIN [Concomitant]
     Active Substance: ATORVASTATIN
     Dosage: 20 MG
  4. BUPROPION [Concomitant]
     Active Substance: BUPROPION
     Dosage: 300 MG
  5. CYCLOBENZAPRINE [Concomitant]
     Active Substance: CYCLOBENZAPRINE
     Dosage: 10 MG
  6. DEXILANT [Concomitant]
     Active Substance: DEXLANSOPRAZOLE
     Dosage: 60 MG
  7. DILTIAZEM [Concomitant]
     Active Substance: DILTIAZEM
     Dosage: 120 MG
  8. FLUTICASONE [Concomitant]
     Active Substance: FLUTICASONE
  9. GABAPENTIN [Concomitant]
     Active Substance: GABAPENTIN
     Dosage: 300 MG
  10. LEVOTHYROXINE [Concomitant]
     Active Substance: LEVOTHYROXINE
  11. MELOXICAM [Concomitant]
     Active Substance: MELOXICAM
     Dosage: 15 MG
  12. MOUNJARO [Concomitant]
     Active Substance: TIRZEPATIDE
  13. MYRBETRIQ [Concomitant]
     Active Substance: MIRABEGRON
     Dosage: 50 MG
  14. NUEDEXTA [Concomitant]
     Active Substance: DEXTROMETHORPHAN HYDROBROMIDE\QUINIDINE SULFATE
  15. NYSTATIN [Concomitant]
     Active Substance: NYSTATIN
  16. POTASSIUM [Concomitant]
     Active Substance: POTASSIUM
  17. SINGULAIR [Concomitant]
     Active Substance: MONTELUKAST SODIUM
     Dosage: 10 MG
  18. SULFAMETHOXAZOLE [Concomitant]
     Active Substance: SULFAMETHOXAZOLE
  19. SYMBICORT [Concomitant]
     Active Substance: BUDESONIDE\FORMOTEROL FUMARATE DIHYDRATE
  20. TRAZODONE [Concomitant]
     Active Substance: TRAZODONE HYDROCHLORIDE
     Dosage: 50 MG
  21. VITAMIN D3 [Concomitant]
     Active Substance: CHOLECALCIFEROL

REACTIONS (1)
  - Back pain [Not Recovered/Not Resolved]
